FAERS Safety Report 5913278-X (Version None)
Quarter: 2008Q4

REPORT INFORMATION
  Report Type: 
  Country: None (occurrence: None)
  Receive Date: 20081008
  Receipt Date: 20081008
  Transmission Date: 20090506
  Serious: Yes (Other)
  Sender: FDA-Public Use
  Company Number: None

PATIENT
  Age: 57 Year
  Sex: Female
  Weight: 59.8748 kg

DRUGS (1)
  1. BACTRIM DS [Suspect]
     Dates: start: 20080926, end: 20081006

REACTIONS (13)
  - ABDOMINAL PAIN UPPER [None]
  - ABNORMAL BEHAVIOUR [None]
  - ANOREXIA [None]
  - BALANCE DISORDER [None]
  - CHROMATURIA [None]
  - DEHYDRATION [None]
  - DIZZINESS [None]
  - INSOMNIA [None]
  - NAUSEA [None]
  - PYREXIA [None]
  - TINNITUS [None]
  - VERTIGO [None]
  - VOMITING [None]
